FAERS Safety Report 7010880-1 (Version None)
Quarter: 2010Q3

REPORT INFORMATION
  Report Type: 
  Country: None (occurrence: None)
  Receive Date: 20100923
  Receipt Date: 20100915
  Transmission Date: 20110219
  Serious: Yes (Hospitalization, Other)
  Sender: FDA-Public Use
  Company Number: US-MERCK-1002USA02326

PATIENT
  Age: 70 Year
  Sex: Female
  Weight: 58 kg

DRUGS (7)
  1. FOSAMAX [Suspect]
     Indication: OSTEOPOROSIS
     Route: 048
     Dates: start: 20040101, end: 20090501
  2. FOSAMAX [Suspect]
     Route: 048
     Dates: start: 20080819
  3. FOSAMAX [Suspect]
     Route: 048
     Dates: start: 20020514, end: 20030201
  4. FOSAMAX [Suspect]
     Route: 048
     Dates: start: 20050101, end: 20090511
  5. ALENDRONATE SODIUM [Suspect]
     Indication: OSTEOPOROSIS
     Route: 048
     Dates: start: 20080301, end: 20090301
  6. VITAMIN E [Concomitant]
     Route: 065
     Dates: start: 19820101
  7. ASCORBIC ACID [Concomitant]
     Route: 065
     Dates: start: 19820101

REACTIONS (26)
  - ABDOMINAL DISCOMFORT [None]
  - ADVERSE DRUG REACTION [None]
  - BONE DENSITY DECREASED [None]
  - BREAST PAIN [None]
  - DIVERTICULUM [None]
  - DRUG INTOLERANCE [None]
  - FALL [None]
  - FEMUR FRACTURE [None]
  - GASTRIC DILATATION [None]
  - HEADACHE [None]
  - HYPERLIPIDAEMIA [None]
  - INSOMNIA [None]
  - IRRITABLE BOWEL SYNDROME [None]
  - JOINT SPRAIN [None]
  - LEFT VENTRICULAR DYSFUNCTION [None]
  - LOW TURNOVER OSTEOPATHY [None]
  - MUSCULOSKELETAL CHEST PAIN [None]
  - OSTEOARTHRITIS [None]
  - OSTEOPENIA [None]
  - PARAESTHESIA [None]
  - RIB FRACTURE [None]
  - ROAD TRAFFIC ACCIDENT [None]
  - SINUS TACHYCARDIA [None]
  - TENDONITIS [None]
  - THROMBOSIS [None]
  - VENTRICULAR EXTRASYSTOLES [None]
